FAERS Safety Report 5254953-2 (Version None)
Quarter: 2007Q1

REPORT INFORMATION
  Report Type: 
  Country: None (occurrence: None)
  Receive Date: 20070302
  Receipt Date: 20070302
  Transmission Date: 20070707
  Serious: Yes (Hospitalization)
  Sender: FDA-Public Use
  Company Number: None

PATIENT
  Age: 42 Year
  Sex: Female
  Weight: 65.7716 kg

DRUGS (1)
  1. AVELOX [Suspect]
     Indication: SINUSITIS
     Dosage: ONE TABLET ONE DAILY PO
     Route: 048

REACTIONS (6)
  - ABDOMINAL PAIN LOWER [None]
  - DRUG HYPERSENSITIVITY [None]
  - NASAL CONGESTION [None]
  - NAUSEA [None]
  - PRURITUS [None]
  - RASH MACULAR [None]
